FAERS Safety Report 4581949-6 (Version None)
Quarter: 2005Q1

REPORT INFORMATION
  Report Type: 
  Country: None (occurrence: None)
  Receive Date: 20050127
  Receipt Date: 20040913
  Transmission Date: 20050727
  Serious: No
  Sender: FDA-Public Use
  Company Number: USA040977990

PATIENT
  Age: 9 Year
  Sex: Female

DRUGS (1)
  1. STRATTERA [Suspect]
     Indication: DISTURBANCE IN ATTENTION
     Dosage: 25 MG AT BEDTIME
     Dates: start: 20040911

REACTIONS (3)
  - INSOMNIA [None]
  - POLLAKIURIA [None]
  - SLEEP TALKING [None]
